FAERS Safety Report 24900603 (Version 1)
Quarter: 2025Q1

REPORT INFORMATION
  Report Type: Report from Study
  Country: US (occurrence: US)
  Receive Date: 20250129
  Receipt Date: 20250129
  Transmission Date: 20250408
  Serious: Yes (Death)
  Sender: BAYER HEALTHCARE PHARMACEUTICALS INC.
  Company Number: US-BAYER-2025A013883

PATIENT
  Sex: Female
  Weight: 48.98 kg

DRUGS (16)
  1. ADEMPAS [Suspect]
     Active Substance: RIOCIGUAT
     Indication: Pulmonary arterial hypertension
     Dates: start: 20230815
  2. ADEMPAS [Suspect]
     Active Substance: RIOCIGUAT
     Indication: Pulmonary arterial hypertension
     Dosage: 2.5 MG, TID
     Route: 048
  3. IBUPROFEN [Concomitant]
     Active Substance: IBUPROFEN
  4. FAMOTIDINE [Concomitant]
     Active Substance: FAMOTIDINE
  5. DULOXETINE HYDROCHLORIDE [Concomitant]
     Active Substance: DULOXETINE HYDROCHLORIDE
  6. MELOXICAM [Concomitant]
     Active Substance: MELOXICAM
  7. TYLENOL EXTRA STRENGTH [Concomitant]
     Active Substance: ACETAMINOPHEN
  8. LASIX [Concomitant]
     Active Substance: FUROSEMIDE
  9. ROSUVASTATIN CALCIUM [Concomitant]
     Active Substance: ROSUVASTATIN CALCIUM
  10. ALBUTEROL SULFATE [Concomitant]
     Active Substance: ALBUTEROL SULFATE
  11. BIOFREEZE [Concomitant]
     Active Substance: MENTHOL
  12. OXYGEN [Concomitant]
     Active Substance: OXYGEN
  13. QUETIAPINE FUMARATE [Concomitant]
     Active Substance: QUETIAPINE FUMARATE
  14. LAMOTRIGINE [Concomitant]
     Active Substance: LAMOTRIGINE
  15. DONEPEZIL HYDROCHLORIDE [Concomitant]
     Active Substance: DONEPEZIL HYDROCHLORIDE
  16. MOTRIN IB [Concomitant]
     Active Substance: IBUPROFEN

REACTIONS (1)
  - Death [Fatal]
